FAERS Safety Report 17290487 (Version 1)
Quarter: 2020Q1

REPORT INFORMATION
  Report Type: Spontaneous
  Country: US (occurrence: US)
  Receive Date: 20200121
  Receipt Date: 20200121
  Transmission Date: 20200409
  Serious: Yes (Hospitalization, Other)
  Sender: FDA-Public Use
  Company Number: US-BRISTOL-MYERS SQUIBB COMPANY-BMS-2020-002921

PATIENT
  Sex: Female
  Weight: 184.5 kg

DRUGS (2)
  1. COUMADIN [Suspect]
     Active Substance: WARFARIN SODIUM
     Indication: PULMONARY EMBOLISM
     Dosage: 10 MILLIGRAM, FOUR TIMES A WEEK
     Route: 048
     Dates: start: 201809
  2. COUMADIN [Suspect]
     Active Substance: WARFARIN SODIUM
     Indication: PRODUCT USED FOR UNKNOWN INDICATION
     Dosage: 5 MILLIGRAM, THREE TIMES A WEEK
     Route: 048

REACTIONS (3)
  - International normalised ratio fluctuation [Unknown]
  - Pneumonia [Unknown]
  - Thrombosis [Unknown]
